FAERS Safety Report 6583709-3 (Version None)
Quarter: 2010Q1

REPORT INFORMATION
  Report Type: 
  Country: None (occurrence: None)
  Receive Date: 20100213
  Receipt Date: 20100213
  Transmission Date: 20100710
  Serious: Yes (Life-Threatening, Hospitalization)
  Sender: FDA-Public Use
  Company Number: None

PATIENT
  Age: 23 Year
  Sex: Female
  Weight: 76 kg

DRUGS (1)
  1. AMPHETAMINE SULFATE [Suspect]
     Indication: OVERDOSE
     Dosage: ORAL 047
     Route: 048
     Dates: start: 20080704

REACTIONS (9)
  - COAGULOPATHY [None]
  - DIALYSIS [None]
  - ENCEPHALOPATHY [None]
  - HYPERTHERMIA [None]
  - HYPOTENSION [None]
  - JAUNDICE [None]
  - OVERDOSE [None]
  - RENAL FAILURE [None]
  - TACHYCARDIA [None]
